FAERS Safety Report 9964319 (Version 1)
Quarter: 2014Q1

REPORT INFORMATION
  Report Type: Spontaneous
  Country: US (occurrence: US)
  Receive Date: 20140305
  Receipt Date: 20140305
  Transmission Date: 20141002
  Serious: Yes (Hospitalization)
  Sender: FDA-Public Use
  Company Number: US-GLAXOSMITHKLINE-A1063194A

PATIENT
  Sex: Male

DRUGS (2)
  1. ADVAIR HFA [Suspect]
     Indication: PULMONARY VALVE STENOSIS
     Route: 065
     Dates: start: 20090831
  2. UNKNOWN MEDICATION [Concomitant]
     Indication: DYSPNOEA

REACTIONS (1)
  - Investigation [Unknown]
